FAERS Safety Report 9559587 (Version 8)
Quarter: 2014Q1

REPORT INFORMATION
  Report Type: Spontaneous
  Country: US (occurrence: US)
  Receive Date: 20130927
  Receipt Date: 20140218
  Transmission Date: 20141002
  Serious: Yes (Other)
  Sender: FDA-Public Use
  Company Number: US-JNJFOC-20130906437

PATIENT
  Age: 63 Year
  Sex: Female
  Weight: 97.07 kg

DRUGS (20)
  1. STELARA [Suspect]
     Indication: PSORIATIC ARTHROPATHY
     Route: 058
     Dates: start: 20110908
  2. STELARA [Suspect]
     Indication: PSORIATIC ARTHROPATHY
     Route: 058
     Dates: start: 20110407
  3. STELARA [Suspect]
     Indication: PSORIATIC ARTHROPATHY
     Route: 058
     Dates: start: 201204
  4. STELARA [Suspect]
     Indication: PSORIATIC ARTHROPATHY
     Route: 058
     Dates: start: 201303
  5. STELARA [Suspect]
     Indication: PSORIATIC ARTHROPATHY
     Route: 058
     Dates: start: 20130624, end: 20130624
  6. STELARA [Suspect]
     Indication: PSORIASIS
     Route: 058
     Dates: start: 201204
  7. STELARA [Suspect]
     Indication: PSORIASIS
     Route: 058
     Dates: start: 20110908
  8. STELARA [Suspect]
     Indication: PSORIASIS
     Route: 058
     Dates: start: 20130624, end: 20130624
  9. STELARA [Suspect]
     Indication: PSORIASIS
     Route: 058
     Dates: start: 201303
  10. STELARA [Suspect]
     Indication: PSORIASIS
     Route: 058
     Dates: start: 20110407
  11. LEXAPRO [Concomitant]
     Indication: PRODUCT USED FOR UNKNOWN INDICATION
     Dosage: 5 YEAR
     Route: 048
  12. METOPROLOL TARTRATE [Concomitant]
     Indication: PRODUCT USED FOR UNKNOWN INDICATION
     Dosage: 5 YEAR
     Route: 048
  13. DIOVAN / HCTZ [Concomitant]
     Indication: PRODUCT USED FOR UNKNOWN INDICATION
     Dosage: 160/1255 MG  FOR 5 YEAR
     Route: 048
  14. TYLENOL PM [Concomitant]
     Indication: PRODUCT USED FOR UNKNOWN INDICATION
     Dosage: 5 YEAR
     Route: 048
  15. ALLEGRA [Concomitant]
     Indication: PRODUCT USED FOR UNKNOWN INDICATION
     Dosage: 5 YEAR
     Route: 048
  16. METHOTREXATE [Concomitant]
     Indication: PRODUCT USED FOR UNKNOWN INDICATION
     Route: 065
  17. HUMIRA [Concomitant]
     Indication: PRODUCT USED FOR UNKNOWN INDICATION
     Route: 065
     Dates: start: 2007
  18. CALCIUM+ D. [Concomitant]
     Dosage: 5 YEAR
     Route: 048
  19. MEGARED [Concomitant]
     Dosage: 5 YEAR
     Route: 048
  20. L-GLUTAMINE [Concomitant]
     Dosage: 5 YEARS
     Route: 048

REACTIONS (6)
  - Staphylococcal infection [Unknown]
  - Impetigo [Recovered/Resolved]
  - Herpes zoster [Unknown]
  - Weight decreased [Unknown]
  - Alopecia [Recovered/Resolved]
  - Infection [Unknown]
